FAERS Safety Report 7704258-2 (Version None)
Quarter: 2011Q3

REPORT INFORMATION
  Report Type: 
  Country: None (occurrence: None)
  Receive Date: 20110823
  Receipt Date: 20110810
  Transmission Date: 20111222
  Serious: No
  Sender: FDA-Public Use
  Company Number: US-B.I. PHARMACEUTICALS,INC./RIDGEFIELD-2011-BP-19702BP

PATIENT
  Sex: Female

DRUGS (7)
  1. LEVOXYL [Concomitant]
     Indication: HYPOTHYROIDISM
     Route: 048
  2. CRESTOR [Concomitant]
     Indication: BLOOD CHOLESTEROL INCREASED
     Dosage: 10 MG
     Route: 048
  3. ARIMIDEX [Concomitant]
     Indication: BREAST CANCER
     Route: 048
  4. CA WITH VIT D [Concomitant]
     Indication: PROPHYLAXIS
     Route: 048
  5. PRADAXA [Suspect]
     Indication: ATRIAL FIBRILLATION
  6. TOPROL-XL [Concomitant]
     Indication: HYPERTENSION
     Dosage: 12.5 MG
     Route: 048
  7. PRADAXA [Suspect]
     Indication: ANTICOAGULANT THERAPY
     Dosage: 150 MG
     Route: 048
     Dates: start: 20110617

REACTIONS (1)
  - FAECES DISCOLOURED [None]
